FAERS Safety Report 5105888-7 (Version None)
Quarter: 2006Q3

REPORT INFORMATION
  Report Type: 
  Country: None (occurrence: None)
  Receive Date: 20060912
  Receipt Date: 20060828
  Transmission Date: 20061208
  Serious: Yes (Other)
  Sender: FDA-Public Use
  Company Number: US200608005988

PATIENT
  Age: 68 Year
  Sex: Female

DRUGS (5)
  1. HUMULIN N [Suspect]
     Indication: DIABETES MELLITUS
     Dosage: 40 U, 2/D
     Dates: start: 19910101
  2. HUMULIN N PEN (HUMULIN N PEN) [Concomitant]
  3. GLYBURIDE [Concomitant]
  4. GEMFIBROZIL [Concomitant]
  5. METFORMIN HCL [Concomitant]

REACTIONS (3)
  - BLINDNESS [None]
  - DIABETIC RETINOPATHY [None]
  - PHARMACEUTICAL PRODUCT COMPLAINT [None]
